FAERS Safety Report 8283470-0 (Version None)
Quarter: 2012Q2

REPORT INFORMATION
  Report Type: 
  Country: None (occurrence: None)
  Receive Date: 20120413
  Receipt Date: 20120329
  Transmission Date: 20120825
  Serious: Yes (Other)
  Sender: FDA-Public Use
  Company Number: CHPA2012US006538

PATIENT
  Sex: Female

DRUGS (2)
  1. EXCEDRIN TENSION HEADACHE CAPLETS [Suspect]
     Dosage: 1 DF, Q5H
     Route: 048
  2. EXCEDRIN TENSION HEADACHE CAPLETS [Suspect]
     Indication: PAIN
     Dosage: 2 DF, UNK
     Route: 048

REACTIONS (5)
  - MALAISE [None]
  - UNDERDOSE [None]
  - BACK INJURY [None]
  - INCORRECT DRUG ADMINISTRATION DURATION [None]
  - LOWER LIMB FRACTURE [None]
